FAERS Safety Report 4369131-9 (Version None)
Quarter: 2004Q2

REPORT INFORMATION
  Report Type: 
  Country: None (occurrence: None)
  Receive Date: 20040528
  Receipt Date: 20040519
  Transmission Date: 20050107
  Serious: Yes (Hospitalization, Other)
  Sender: FDA-Public Use
  Company Number: 2004208832JP

PATIENT
  Age: 70 Year
  Sex: Male

DRUGS (9)
  1. DOXORUBICIN HCL [Suspect]
     Indication: PROSTATE CANCER STAGE IV
     Dosage: CYCLIC, IV
     Route: 042
     Dates: start: 19920101
  2. CISPLATIN [Suspect]
     Indication: PROSTATE CANCER STAGE IV
     Dosage: CYCLIC, IV
     Route: 042
     Dates: start: 19920101
  3. UFT [Suspect]
     Indication: PROSTATE CANCER STAGE IV
     Dosage: CYCLIC, ORAL
     Route: 048
     Dates: start: 19920101
  4. ETHINYL ESTRADIOL TAB [Suspect]
     Indication: PROSTATE CANCER STAGE IV
     Dosage: CYCLIC, ORAL
     Route: 048
     Dates: start: 19920101
  5. VINBLASTINE SULFATE (VINBLASTINE SULFATE) [Suspect]
     Indication: BLADDER CANCER
     Dosage: CYCLIC, IV
     Route: 042
     Dates: start: 19990101
  6. HONVAN (FOSFESTROL, TETRASODIUM) [Suspect]
     Indication: BLADDER CANCER
     Dosage: 4 CYCLES, IV
     Route: 042
     Dates: start: 19990101
  7. ESTRACYT (ESTRAMUSTINE PHOSPHATE) CAPSULE [Suspect]
     Indication: ABDOMINAL NEOPLASM
     Dosage: CYCLIC, ORAL
     Route: 048
     Dates: start: 19990101
  8. CARBOPLATIN (CARBOPLATIN) SOLUT [Suspect]
     Indication: ABDOMINAL NEOPLASM
     Dosage: 1 COURSE, CYCLIC
  9. NEOCEL (DOCETAXEL) SOLUTION, STERILE [Suspect]
     Indication: ABDOMINAL NEOPLASM
     Dosage: 1 COURSE, CYCLIC

REACTIONS (4)
  - ABDOMINAL WALL NEOPLASM [None]
  - BLADDER CANCER [None]
  - PANCREATIC CARCINOMA [None]
  - PROSTATIC SPECIFIC ANTIGEN INCREASED [None]
